FAERS Safety Report 18945615 (Version 1)
Quarter: 2021Q1

REPORT INFORMATION
  Report Type: Spontaneous
  Country: CH (occurrence: CH)
  Receive Date: 20210226
  Receipt Date: 20210226
  Transmission Date: 20210420
  Serious: Yes (Death)
  Sender: FDA-Public Use
  Company Number: CH-MALLINCKRODT-T202100873

PATIENT
  Sex: Female

DRUGS (1)
  1. UVADEX [Suspect]
     Active Substance: METHOXSALEN
     Indication: CUTANEOUS T-CELL LYMPHOMA STAGE IV
     Dosage: EVERY 2 WEEKS FOR 3 MONTHS, (EXTRACORPOREAL)
     Route: 050

REACTIONS (1)
  - Death [Fatal]
